FAERS Safety Report 12461054 (Version 1)
Quarter: 2016Q2

REPORT INFORMATION
  Report Type: Spontaneous
  Country: US (occurrence: US)
  Receive Date: 20160613
  Receipt Date: 20160613
  Transmission Date: 20160815
  Serious: No
  Sender: FDA-Public Use
  Company Number: US-ALLERGAN-1523492US

PATIENT
  Age: 36 Year

DRUGS (2)
  1. LIDOCAINE 1% [Concomitant]
     Active Substance: LIDOCAINE
     Dosage: 4 INJECTIONS, ONE TIME DOSE
     Route: 058
     Dates: start: 20150729, end: 20150729
  2. KYBELLA [Suspect]
     Active Substance: DEOXYCHOLIC ACID
     Indication: FAT TISSUE INCREASED
     Dosage: 2.5 ML, ONE TIME DOSE
     Route: 058
     Dates: start: 20150729

REACTIONS (1)
  - Alopecia [Recovering/Resolving]

NARRATIVE: CASE EVENT DATE: 20150820
